FAERS Safety Report 9668231 (Version 1)
Quarter: 2013Q4

REPORT INFORMATION
  Report Type: Spontaneous
  Country: JP (occurrence: None)
  Receive Date: 20131101
  Receipt Date: 20131101
  Transmission Date: 20140711
  Serious: Yes (Death)
  Sender: FDA-Public Use
  Company Number: SYM-2013-12066

PATIENT
  Sex: 0

DRUGS (3)
  1. FLUOROURACIL (FLUOROURACIL) (FLUOROURACIL) [Suspect]
     Indication: OESOPHAGEAL CARCINOMA RECURRENT
  2. NEDAPLATIN [Suspect]
     Indication: OESOPHAGEAL CARCINOMA RECURRENT
     Dosage: 70MG/M2, EVERY CYCLE, UNKNOWN
  3. THERAPEUTIC RADIOPHARMACEUTICALS [Suspect]
     Indication: OESOPHAGEAL CARCINOMA RECURRENT
     Dosage: UNKNOWN,UNKNOWN

REACTIONS (1)
  - Pericardial effusion [None]
